FAERS Safety Report 17713018 (Version 1)
Quarter: 2020Q2

REPORT INFORMATION
  Report Type: Spontaneous
  Country: FR (occurrence: FR)
  Receive Date: 20200427
  Receipt Date: 20200427
  Transmission Date: 20200714
  Serious: Yes (Death)
  Sender: FDA-Public Use
  Company Number: FR-MYLANLABS-2020M1040807

PATIENT
  Age: 75 Year
  Sex: Female

DRUGS (2)
  1. ARTICAINE [Interacting]
     Active Substance: ARTICAINE
     Indication: LOCAL ANAESTHESIA
     Dosage: UNK
  2. RYTHMOL [Suspect]
     Active Substance: PROPAFENONE HYDROCHLORIDE
     Indication: ARRHYTHMIA
     Dosage: UNK

REACTIONS (2)
  - Drug interaction [Unknown]
  - Overdose [Fatal]
